FAERS Safety Report 5726762-9 (Version None)
Quarter: 2008Q2

REPORT INFORMATION
  Report Type: 
  Country: None (occurrence: None)
  Receive Date: 20080502
  Receipt Date: 20080423
  Transmission Date: 20081010
  Serious: Yes (Hospitalization)
  Sender: FDA-Public Use
  Company Number: FR-ABBOTT-08P-056-0448971-00

PATIENT
  Sex: Female

DRUGS (7)
  1. HUMIRA [Suspect]
     Indication: PSORIATIC ARTHROPATHY
     Route: 058
     Dates: start: 20070728, end: 20071201
  2. KETOPROFEN [Suspect]
     Indication: PSORIATIC ARTHROPATHY
     Dates: start: 20071217, end: 20071219
  3. OMEPRAZOLE [Suspect]
     Route: 048
     Dates: start: 20071217
  4. LEFLUNOMIDE [Concomitant]
     Indication: PSORIATIC ARTHROPATHY
     Route: 048
     Dates: start: 20050801
  5. LEFLUNOMIDE [Concomitant]
     Indication: MUSCULOSKELETAL PAIN
  6. PARACETAMOL [Concomitant]
     Indication: PSORIATIC ARTHROPATHY
     Route: 048
  7. PARACETAMOL [Concomitant]
     Indication: MUSCULOSKELETAL PAIN

REACTIONS (9)
  - ABDOMINAL PAIN [None]
  - ANXIETY [None]
  - CONSTIPATION [None]
  - INTESTINAL FUNCTIONAL DISORDER [None]
  - NAUSEA [None]
  - RENAL FAILURE ACUTE [None]
  - RENAL TUBULAR DISORDER [None]
  - VOMITING [None]
  - WEIGHT DECREASED [None]
